FAERS Safety Report 8624233-3 (Version None)
Quarter: 2012Q3

REPORT INFORMATION
  Report Type: 
  Country: None (occurrence: None)
  Receive Date: 20120827
  Receipt Date: 20120814
  Transmission Date: 20120928
  Serious: Yes (Life-Threatening, Hospitalization)
  Sender: FDA-Public Use
  Company Number: DE-CELGENEUS-062-21880-11031172

PATIENT
  Age: 61 Year
  Sex: Female
  Weight: 70 kg

DRUGS (22)
  1. AMITRIPTYLINE HCL [Concomitant]
     Indication: DEPRESSION
     Dosage: 25 MILLIGRAM
     Route: 065
     Dates: start: 20110306
  2. TRIMETHOPRIM + SULFAMETHOXAZOLE [Concomitant]
     Route: 065
  3. CLOPIDOGREL BISULFATE [Suspect]
     Indication: PROPHYLAXIS
     Dosage: 75 MILLIGRAM
     Route: 065
  4. VALORON [Concomitant]
     Indication: PAIN
     Dosage: 60 MILLIGRAM
     Route: 065
     Dates: start: 20110306, end: 20110307
  5. DEXAMETHASONE [Suspect]
     Indication: MULTIPLE MYELOMA
     Route: 048
     Dates: start: 20110224, end: 20110317
  6. ALLOPURINOL [Suspect]
     Dosage: 300 MILLIGRAM
     Route: 065
  7. AMITRIPTYLINE HYDROCHLORIDE [Concomitant]
     Route: 065
     Dates: start: 20110310, end: 20110321
  8. DEXAMETHASONE [Suspect]
     Dosage: 40 MILLIGRAM
     Route: 048
     Dates: start: 20110310, end: 20110317
  9. LYRICA [Concomitant]
     Indication: PAIN
     Dosage: 50 MILLIGRAM
     Route: 065
     Dates: start: 20110308, end: 20110322
  10. ENOXAPARIN SODIUM [Concomitant]
     Dosage: .4 MILLILITER
     Route: 058
  11. MOVIPREP [Concomitant]
     Dosage: 2 DOSAGE FORMS
     Route: 065
  12. REVLIMID [Suspect]
     Indication: MULTIPLE MYELOMA
     Route: 048
     Dates: start: 20110224, end: 20110316
  13. SOVENTOL GEL [Concomitant]
     Route: 061
     Dates: start: 20110307, end: 20110308
  14. FOLSAN [Concomitant]
     Dosage: 5 MILLIGRAM
     Route: 065
  15. PANTOPRAZOLE [Suspect]
     Dosage: 40 MILLIGRAM
     Route: 065
  16. ACYCLOVIR [Suspect]
     Dosage: 400 MILLIGRAM
     Route: 065
  17. TORSEMIDE [Suspect]
     Indication: HYPERTENSION
     Dosage: 10 MILLIGRAM
     Route: 065
  18. MORPHINE [Concomitant]
     Indication: PAIN
     Dosage: 60 MILLIGRAM
     Route: 065
     Dates: start: 20110307
  19. MORPHINE [Concomitant]
     Dosage: 20 MILLIGRAM
  20. ENALAPRIL MALEATE [Suspect]
     Dosage: 10 MILLIGRAM
     Route: 065
  21. VALORON [Concomitant]
     Dosage: 4X20A?
     Route: 065
  22. COTRIM DS [Concomitant]
     Indication: PROPHYLAXIS
     Route: 065

REACTIONS (2)
  - PRESYNCOPE [None]
  - HEPATOTOXICITY [None]
